FAERS Safety Report 5081834-X (Version None)
Quarter: 2006Q3

REPORT INFORMATION
  Report Type: 
  Country: None (occurrence: None)
  Receive Date: 20060816
  Receipt Date: 20060405
  Transmission Date: 20061208
  Serious: Yes (Hospitalization)
  Sender: FDA-Public Use
  Company Number: US-ROCHE-443598

PATIENT
  Age: 16 Year
  Sex: Male
  Weight: 73.5 kg

DRUGS (1)
  1. ACCUTANE [Suspect]
     Indication: ACNE
     Route: 048
     Dates: start: 19990416, end: 19990825

REACTIONS (23)
  - ANAEMIA [None]
  - ANXIETY [None]
  - COLITIS ULCERATIVE [None]
  - CROHN'S DISEASE [None]
  - DEPRESSION [None]
  - DRUG DEPENDENCE [None]
  - EMOTIONAL DISTRESS [None]
  - FISTULA [None]
  - GASTROINTESTINAL INFECTION [None]
  - HAEMATOMA [None]
  - HAEMORRHAGE [None]
  - HYPOKALAEMIA [None]
  - INFLAMMATORY BOWEL DISEASE [None]
  - INJURY [None]
  - LIP DRY [None]
  - OVERDOSE [None]
  - PERIRECTAL ABSCESS [None]
  - PLEURAL EFFUSION [None]
  - PSYCHIATRIC SYMPTOM [None]
  - SMALL INTESTINAL OBSTRUCTION [None]
  - SUICIDAL IDEATION [None]
  - TACHYCARDIA [None]
  - WHITE BLOOD CELL DISORDER [None]
